FAERS Safety Report 7662032 (Version 4)
Quarter: 2013Q1

REPORT INFORMATION
  Report Type: Report from Study
  Country: FR (occurrence: FR)
  Receive Date: 20101109
  Receipt Date: 20130306
  Transmission Date: 20140127
  Serious: Yes (Hospitalization, Other)
  Sender: FDA-Public Use
  Company Number: FR-GENZYME-THYM-1002037

PATIENT
  Age: 38 None
  Sex: Female

DRUGS (9)
  1. THYMOGLOBULINE [Suspect]
     Indication: BONE MARROW CONDITIONING REGIMEN
     Dosage: 2.5 MG/KG, QD
     Route: 042
     Dates: start: 20100902, end: 20100903
  2. BUSILVEX [Suspect]
     Indication: BONE MARROW CONDITIONING REGIMEN
     Dosage: 3.2 MG/KG, QD
     Route: 042
     Dates: start: 20100901, end: 20100902
  3. ENDOXAN [Suspect]
     Indication: BONE MARROW CONDITIONING REGIMEN
     Dosage: 60 MG/KG, QD
     Route: 042
     Dates: start: 20100831, end: 20100831
  4. ARACYTINE [Suspect]
     Indication: BONE MARROW CONDITIONING REGIMEN
     Dosage: 1000 MG/M2, QD
     Route: 042
     Dates: start: 20100823, end: 20100827
  5. ARACYTINE [Suspect]
     Indication: ACUTE MYELOID LEUKAEMIA
  6. CLOFARABINE [Concomitant]
     Indication: BONE MARROW CONDITIONING REGIMEN
     Dosage: 30 MG/M2, QD
     Route: 042
     Dates: start: 20100823, end: 20100827
  7. CLOFARABINE [Concomitant]
     Indication: ACUTE MYELOID LEUKAEMIA
  8. CICLOSPORIN [Concomitant]
     Indication: IMMUNOSUPPRESSION
     Dosage: UNK
     Route: 065
     Dates: start: 20100902
  9. CELLCEPT [Concomitant]
     Indication: IMMUNOSUPPRESSION
     Dosage: UNK
     Route: 065
     Dates: start: 20100902

REACTIONS (4)
  - Encephalitis [Recovered/Resolved]
  - Bone marrow failure [Recovered/Resolved]
  - Pseudomonas infection [Unknown]
  - Acute myeloid leukaemia [Unknown]
